FAERS Safety Report 25180004 (Version 1)
Quarter: 2025Q2

REPORT INFORMATION
  Report Type: Spontaneous
  Country: US (occurrence: None)
  Receive Date: 20250409
  Receipt Date: 20250409
  Transmission Date: 20250717
  Serious: Yes (Other)
  Sender: FDA-CTU
  Company Number: None

PATIENT
  Age: 75 Year
  Sex: Male

DRUGS (8)
  1. AMBRISENTAN [Suspect]
     Active Substance: AMBRISENTAN
  2. TADALAFIL [Concomitant]
     Active Substance: TADALAFIL
  3. ASPIRIN [Concomitant]
     Active Substance: ASPIRIN
  4. atorvastatin 20mg daily [Concomitant]
  5. lasix 60mg daily [Concomitant]
  6. omeprazole 20mg daily [Concomitant]
  7. saw palmetto 450mg daily [Concomitant]
  8. vitamin b12 1000mcg daily [Concomitant]

REACTIONS (1)
  - Oedema peripheral [None]

NARRATIVE: CASE EVENT DATE: 20250331
